FAERS Safety Report 5171478-3 (Version None)
Quarter: 2006Q4

REPORT INFORMATION
  Report Type: 
  Country: None (occurrence: None)
  Receive Date: 20061208
  Receipt Date: 20061208
  Transmission Date: 20070319
  Serious: Yes (Life-Threatening, Disabling, Other)
  Sender: FDA-Public Use
  Company Number: None

PATIENT
  Age: 81 Year
  Sex: Female
  Weight: 63.5036 kg

DRUGS (11)
  1. DURAGESIC-100 [Suspect]
     Indication: BACK PAIN
     Dosage: 50MCG TOPICAL
     Route: 061
     Dates: start: 20060702, end: 20060707
  2. PAXIL [Concomitant]
  3. PLAVIX [Concomitant]
  4. NAMENDA [Concomitant]
  5. TOPROL-XL [Concomitant]
  6. MVIT [Concomitant]
  7. ASPIRIN [Concomitant]
  8. AMIODERONE [Concomitant]
  9. TYLENOL ARTHRITIS STRENGTH [Concomitant]
  10. SYNTHROID [Concomitant]
  11. CARBOLEVADOPA [Concomitant]

REACTIONS (3)
  - COMA [None]
  - ILL-DEFINED DISORDER [None]
  - RESPIRATORY FAILURE [None]
